FAERS Safety Report 8732216 (Version 2)
Quarter: 2012Q4

REPORT INFORMATION
  Report Type: Report from Study
  Country: US (occurrence: None)
  Receive Date: 20120801
  Receipt Date: 20121001
  Transmission Date: 20130627
  Serious: Yes (Hospitalization)
  Sender: FDA-Public Use
  Company Number: 2012SGN00324

PATIENT
  Age: 32 Year
  Sex: Male
  Weight: 81.6 kg

DRUGS (7)
  1. BRENTUXIMAB VEDOTIN [Suspect]
     Indication: HODGKIN^S DISEASE
     Dosage: 1.8 MG/KG, Q21D, INTRAVENOUS
     Route: 042
     Dates: start: 20120523, end: 20120613
  2. ACYCLOVIR [Concomitant]
  3. ALBUTEROL SULFATE [Concomitant]
  4. COTRIM [Concomitant]
  5. MEPRON [Concomitant]
  6. PEPCID [Concomitant]
  7. PREDNISONE [Concomitant]

REACTIONS (5)
  - Pneumonitis [None]
  - Fatigue [None]
  - Nausea [None]
  - Vomiting [None]
  - Non-cardiac chest pain [None]
